FAERS Safety Report 7953620-1 (Version None)
Quarter: 2011Q4

REPORT INFORMATION
  Report Type: 
  Country: None (occurrence: None)
  Receive Date: 20111202
  Receipt Date: 20111128
  Transmission Date: 20120403
  Serious: Yes (Hospitalization, Disabling, Other)
  Sender: FDA-Public Use
  Company Number: US-ELI_LILLY_AND_COMPANY-US201106004348

PATIENT
  Sex: Male
  Weight: 124.72 kg

DRUGS (5)
  1. BYETTA [Suspect]
     Dosage: 10 UG, BID
     Dates: start: 20090101, end: 20100501
  2. METFORMIN HCL [Concomitant]
     Indication: DIABETES MELLITUS
     Dosage: 1000 MG, BID
     Dates: start: 20081201
  3. DIOVAN [Concomitant]
     Indication: HYPERTENSION
     Dosage: UNK
     Dates: start: 20081201
  4. LIPITOR [Concomitant]
     Indication: HYPERCHOLESTEROLAEMIA
     Dosage: 20 MG, QD
     Dates: start: 20081201
  5. ASPIRIN [Concomitant]
     Dosage: 81 MG, QD

REACTIONS (2)
  - PANCREATITIS [None]
  - RENAL DISORDER [None]
